FAERS Safety Report 4496370-9 (Version None)
Quarter: 2004Q4

REPORT INFORMATION
  Report Type: 
  Country: None (occurrence: None)
  Receive Date: 20041109
  Receipt Date: 20041029
  Transmission Date: 20050328
  Serious: Yes (Other)
  Sender: FDA-Public Use
  Company Number: PHNU2004DE03703

PATIENT
  Sex: Male

DRUGS (1)
  1. AREDIA [Suspect]
     Indication: PROSTATE CANCER METASTATIC
     Dosage: 90 MG, ONCE/SINGLE
     Dates: start: 20041028, end: 20041028

REACTIONS (4)
  - ALANINE AMINOTRANSFERASE INCREASED [None]
  - ASPARTATE AMINOTRANSFERASE INCREASED [None]
  - LIPASE INCREASED [None]
  - TRANSAMINASES INCREASED [None]
